FAERS Safety Report 20028183 (Version 1)
Quarter: 2021Q4

REPORT INFORMATION
  Report Type: Spontaneous
  Country: US (occurrence: US)
  Receive Date: 20211103
  Receipt Date: 20211103
  Transmission Date: 20220303
  Serious: Yes (Hospitalization, Other)
  Sender: FDA-Public Use
  Company Number: US-APOTEX-2021AP045130

PATIENT
  Age: 64 Year
  Sex: Female
  Weight: 72.3 kg

DRUGS (2)
  1. ENOXAPARIN [Suspect]
     Active Substance: ENOXAPARIN
     Indication: Coagulopathy
     Dosage: 40 MILLIGRAM, QD
     Route: 065
  2. ENOXAPARIN [Suspect]
     Active Substance: ENOXAPARIN
     Dosage: 70 MILLIGRAM, BID
     Route: 065

REACTIONS (1)
  - Gastrointestinal haemorrhage [Unknown]
